FAERS Safety Report 24745456 (Version 1)
Quarter: 2024Q4

REPORT INFORMATION
  Report Type: Spontaneous
  Country: JP (occurrence: JP)
  Receive Date: 20241217
  Receipt Date: 20241217
  Transmission Date: 20250115
  Serious: Yes (Other)
  Sender: ASTELLAS
  Company Number: JP-ASTELLAS-2024-AER-012751

PATIENT
  Age: 9 Decade
  Sex: Male

DRUGS (4)
  1. VYLOY [Suspect]
     Active Substance: ZOLBETUXIMAB-CLZB
     Indication: Gastric cancer
     Route: 042
     Dates: start: 20240906
  2. VYLOY [Suspect]
     Active Substance: ZOLBETUXIMAB-CLZB
     Route: 042
     Dates: start: 202409
  3. XELODA [Suspect]
     Active Substance: CAPECITABINE
     Indication: Product used for unknown indication
     Route: 065
  4. OXALIPLATIN [Suspect]
     Active Substance: OXALIPLATIN
     Indication: Product used for unknown indication
     Route: 065

REACTIONS (2)
  - Metastases to bone [Unknown]
  - Decreased appetite [Recovered/Resolved]

NARRATIVE: CASE EVENT DATE: 20240930
